FAERS Safety Report 4660063-5 (Version None)
Quarter: 2005Q2

REPORT INFORMATION
  Report Type: 
  Country: None (occurrence: None)
  Receive Date: 20050512
  Receipt Date: 20041029
  Transmission Date: 20051028
  Serious: No
  Sender: FDA-Public Use
  Company Number: US-GLAXOSMITHKLINE-A0531820A

PATIENT
  Sex: Female

DRUGS (1)
  1. RELAFEN [Suspect]
     Indication: OSTEOARTHRITIS
     Dosage: 750MG TWICE PER DAY
     Route: 048

REACTIONS (4)
  - CONTUSION [None]
  - HYPOAESTHESIA [None]
  - JOINT STIFFNESS [None]
  - OEDEMA PERIPHERAL [None]
